FAERS Safety Report 7007949-4 (Version None)
Quarter: 2010Q3

REPORT INFORMATION
  Report Type: 
  Country: None (occurrence: None)
  Receive Date: 20100922
  Receipt Date: 20100915
  Transmission Date: 20110219
  Serious: Yes (Other)
  Sender: FDA-Public Use
  Company Number: JP-PFIZER INC-2010090802

PATIENT
  Age: 49 Day
  Sex: Female
  Weight: 0.61 kg

DRUGS (2)
  1. REVATIO [Suspect]
     Indication: PULMONARY HYPERTENSION
     Dosage: UNK
  2. NITRIC OXIDE [Concomitant]
     Indication: PERSISTENT FOETAL CIRCULATION
     Dosage: UNK

REACTIONS (2)
  - GENERALISED OEDEMA [None]
  - RESPIRATORY FAILURE [None]
